FAERS Safety Report 4579735-6 (Version None)
Quarter: 2005Q1

REPORT INFORMATION
  Report Type: 
  Country: None (occurrence: None)
  Receive Date: 20050210
  Receipt Date: 20050131
  Transmission Date: 20050727
  Serious: Yes (Death, Other)
  Sender: FDA-Public Use
  Company Number: 200510140BWH

PATIENT
  Age: 75 Year
  Sex: Female
  Weight: 71.6683 kg

DRUGS (6)
  1. TRASYLOL [Suspect]
     Indication: AORTIC VALVE REPLACEMENT
     Dosage: 6000000 U, ONCE
     Dates: start: 20050124
  2. TRASYLOL [Suspect]
     Indication: CORONARY ARTERY SURGERY
     Dosage: 6000000 U, ONCE
     Dates: start: 20050124
  3. TRASYLOL [Suspect]
     Indication: MITRAL VALVE REPLACEMENT
     Dosage: 6000000 U, ONCE
     Dates: start: 20050124
  4. TRASYLOL [Suspect]
     Indication: AORTIC VALVE REPLACEMENT
     Dosage: 6000000 U, ONCE
     Dates: start: 20050127
  5. TRASYLOL [Suspect]
     Indication: CORONARY ARTERY SURGERY
     Dosage: 6000000 U, ONCE
     Dates: start: 20050127
  6. TRASYLOL [Suspect]
     Indication: MITRAL VALVE REPLACEMENT
     Dosage: 6000000 U, ONCE
     Dates: start: 20050127

REACTIONS (11)
  - ACIDOSIS [None]
  - DISSEMINATED INTRAVASCULAR COAGULATION [None]
  - GENERAL PHYSICAL HEALTH DETERIORATION [None]
  - HEPARIN-INDUCED THROMBOCYTOPENIA [None]
  - INTRACARDIAC THROMBUS [None]
  - PLATELET COUNT DECREASED [None]
  - PYREXIA [None]
  - RENAL FAILURE [None]
  - THERAPY NON-RESPONDER [None]
  - VENTRICULAR DYSFUNCTION [None]
  - VISUAL DISTURBANCE [None]
